FAERS Safety Report 5828056-X (Version None)
Quarter: 2008Q3

REPORT INFORMATION
  Report Type: 
  Country: None (occurrence: None)
  Receive Date: 20080730
  Receipt Date: 20080215
  Transmission Date: 20090109
  Serious: No
  Sender: FDA-Public Use
  Company Number: A0709986A

PATIENT
  Sex: Female

DRUGS (2)
  1. ZANTAC [Suspect]
     Indication: DUODENAL ULCER
     Dosage: 450MG PER DAY
     Route: 048
  2. LEVSIN [Concomitant]

REACTIONS (1)
  - ABDOMINAL PAIN UPPER [None]
